FAERS Safety Report 24279416 (Version 2)
Quarter: 2024Q3

REPORT INFORMATION
  Report Type: Report from Study
  Country: AR (occurrence: AR)
  Receive Date: 20240903
  Receipt Date: 20240922
  Transmission Date: 20241016
  Serious: Yes (Hospitalization)
  Sender: BIOGEN
  Company Number: AR-BIOGEN-2023BI01225272

PATIENT
  Age: 45 Year
  Sex: Male

DRUGS (1)
  1. TYSABRI [Suspect]
     Active Substance: NATALIZUMAB
     Indication: Multiple sclerosis
     Route: 050
     Dates: start: 20150901

REACTIONS (6)
  - Cellulitis [Recovered/Resolved]
  - Ingrowing nail [Unknown]
  - Injury [Unknown]
  - Quadriparesis [Unknown]
  - Multiple sclerosis pseudo relapse [Unknown]
  - Urinary tract infection [Unknown]

NARRATIVE: CASE EVENT DATE: 20230831
